FAERS Safety Report 7358431-6 (Version None)
Quarter: 2011Q1

REPORT INFORMATION
  Report Type: 
  Country: None (occurrence: None)
  Receive Date: 20110314
  Receipt Date: 20110314
  Transmission Date: 20110831
  Serious: Yes (Hospitalization)
  Sender: FDA-Public Use
  Company Number: None

PATIENT
  Age: 64 Year
  Sex: Male
  Weight: 89.8122 kg

DRUGS (11)
  1. ROBUVASTATIN [Concomitant]
  2. BENAZEPRIL HYDROCHLORIDE [Concomitant]
  3. COLACE [Concomitant]
  4. MULTI-VITAMIN [Concomitant]
  5. DECITABINE [Suspect]
     Indication: MYELODYSPLASTIC SYNDROME
     Dosage: 0.2MG/KG SQ BID
     Route: 058
     Dates: start: 20100907
  6. ACETAMINOPHEN [Concomitant]
  7. GLIMEPIRIDE [Concomitant]
  8. TESSALON [Concomitant]
  9. OMEPRAZOLE [Concomitant]
  10. LEVAQUIN [Concomitant]
  11. METFORMIN [Concomitant]

REACTIONS (2)
  - FEBRILE NEUTROPENIA [None]
  - BACTERIAL INFECTION [None]
